FAERS Safety Report 7287554-5 (Version None)
Quarter: 2011Q1

REPORT INFORMATION
  Report Type: 
  Country: None (occurrence: None)
  Receive Date: 20110208
  Receipt Date: 20110208
  Transmission Date: 20110831
  Serious: Yes (Life-Threatening)
  Sender: FDA-Public Use
  Company Number: None

PATIENT
  Age: 62 Year
  Sex: Female
  Weight: 52.6173 kg

DRUGS (1)
  1. BENZONATATE [Suspect]
     Dosage: 1 3 X DAY FOR COUGH PO
     Route: 048
     Dates: start: 20110202, end: 20110203

REACTIONS (1)
  - DRUG HYPERSENSITIVITY [None]
